FAERS Safety Report 8006373-5 (Version None)
Quarter: 2011Q4

REPORT INFORMATION
  Report Type: 
  Country: None (occurrence: None)
  Receive Date: 20111226
  Receipt Date: 20111214
  Transmission Date: 20120403
  Serious: Yes (Hospitalization)
  Sender: FDA-Public Use
  Company Number: PHHY2011IT102915

PATIENT
  Sex: Male

DRUGS (5)
  1. LEVOTHYROXINE SODIUM [Concomitant]
     Indication: HYPOTHYROIDISM
     Dosage: 1 U, UNK
     Route: 048
  2. BIFRIL [Concomitant]
     Indication: HYPERTENSION
     Dosage: UNK UKN, UNK
  3. AFINITOR [Suspect]
     Dosage: 10 MG, UNK
  4. ASPIRIN [Concomitant]
     Dosage: UNK UKN, UNK
     Route: 048
     Dates: start: 20110201
  5. AFINITOR [Suspect]
     Indication: RENAL CELL CARCINOMA
     Dosage: 10 MG, DAILY
     Route: 048
     Dates: start: 20110505, end: 20110520

REACTIONS (3)
  - SKIN REACTION [None]
  - THROMBOCYTOPENIA [None]
  - PULMONARY TOXICITY [None]
